FAERS Safety Report 4315929-2 (Version None)
Quarter: 2004Q1

REPORT INFORMATION
  Report Type: 
  Country: None (occurrence: None)
  Receive Date: 20040302
  Receipt Date: 20031215
  Transmission Date: 20041129
  Serious: Yes (Hospitalization)
  Sender: FDA-Public Use
  Company Number: US061218

PATIENT
  Age: 43 Year
  Sex: Female

DRUGS (5)
  1. ENBREL [Suspect]
     Indication: RHEUMATOID ARTHRITIS
     Dosage: 25 MG, TWICE WEELY, SC
     Route: 058
     Dates: start: 20030101
  2. HYDROXYCHLOROQUINE PHOSPHATE [Concomitant]
  3. MONTELKAST [Concomitant]
  4. ALBUTEROL SULFATE [Concomitant]
  5. VALDECOXIB [Concomitant]

REACTIONS (1)
  - PNEUMONIA [None]
